FAERS Safety Report 6836436-9 (Version None)
Quarter: 2010Q3

REPORT INFORMATION
  Report Type: 
  Country: None (occurrence: None)
  Receive Date: 20100713
  Receipt Date: 20100701
  Transmission Date: 20110219
  Serious: Yes (Other)
  Sender: FDA-Public Use
  Company Number: US-PFIZER INC-2010063741

PATIENT
  Sex: Female
  Weight: 102 kg

DRUGS (4)
  1. LYRICA [Suspect]
     Indication: NEUROPATHY PERIPHERAL
     Dosage: 100 MG, DAILY
     Dates: start: 20070101, end: 20100101
  2. COREG [Concomitant]
     Indication: HYPERTENSION
     Dosage: UNK
  3. WELLBUTRIN [Concomitant]
     Dosage: UNK
  4. ZOLOFT [Concomitant]
     Dosage: UNK

REACTIONS (4)
  - ANKLE FRACTURE [None]
  - DRUG INEFFECTIVE [None]
  - JOINT SWELLING [None]
  - MYOCARDIAL INFARCTION [None]
